FAERS Safety Report 20645292 (Version 1)
Quarter: 2022Q1

REPORT INFORMATION
  Report Type: Spontaneous
  Country: IT (occurrence: IT)
  Receive Date: 20220328
  Receipt Date: 20220328
  Transmission Date: 20220423
  Serious: Yes (Other)
  Sender: FDA-Public Use
  Company Number: IT-CLOVIS ONCOLOGY-CLO-2021-001183

PATIENT

DRUGS (1)
  1. RUBRACA [Suspect]
     Active Substance: RUCAPARIB CAMSYLATE
     Indication: Ovarian cancer
     Dosage: 1200 MILLIGRAM, QD
     Route: 048
     Dates: start: 20210609, end: 2021

REACTIONS (2)
  - Dermatitis bullous [Recovered/Resolved]
  - Limb injury [Recovered/Resolved]
